FAERS Safety Report 8270220-7 (Version None)
Quarter: 2012Q2

REPORT INFORMATION
  Report Type: 
  Country: None (occurrence: None)
  Receive Date: 20120410
  Receipt Date: 20120329
  Transmission Date: 20120825
  Serious: Yes (Hospitalization)
  Sender: FDA-Public Use
  Company Number: JP-SANOFI-AVENTIS-2012SA021828

PATIENT
  Age: 90 Year
  Sex: Female
  Weight: 44.8 kg

DRUGS (9)
  1. CELECOXIB [Suspect]
     Indication: RHEUMATOID ARTHRITIS
     Route: 048
     Dates: start: 20120207, end: 20120209
  2. PRAVASTATIN SODIUM [Concomitant]
     Route: 048
  3. PROPRANOLOL HYDROCHLORIDE [Concomitant]
     Dates: start: 19920707
  4. TRITEREN [Concomitant]
     Dates: start: 20111227
  5. ZOLPIDEM [Suspect]
     Route: 048
  6. MUCODYNE [Concomitant]
  7. ALFAROL [Concomitant]
  8. ETIZOLAM [Concomitant]
  9. PRAVASTATIN SODIUM [Concomitant]
     Dates: start: 19920707

REACTIONS (1)
  - MYOSITIS [None]
